FAERS Safety Report 9008387 (Version 2)
Quarter: 2013Q1

REPORT INFORMATION
  Report Type: Spontaneous
  Country: FR (occurrence: FR)
  Receive Date: 20130111
  Receipt Date: 20130222
  Transmission Date: 20140127
  Serious: Yes (Hospitalization)
  Sender: FDA-Public Use
  Company Number: PHHY2013FR002349

PATIENT
  Age: 14 Year
  Sex: Female

DRUGS (4)
  1. GLIVEC [Suspect]
     Indication: CHRONIC MYELOID LEUKAEMIA
     Dosage: 400 MG, QD
     Route: 048
     Dates: start: 20120928, end: 20121024
  2. GLIVEC [Suspect]
     Dosage: 400 MG, QD
     Route: 048
     Dates: start: 20121102, end: 20130104
  3. GLIVEC [Suspect]
     Dosage: UNK UKN, UNK
     Dates: start: 20130114
  4. HYDREA [Concomitant]
     Dosage: UNK UKN, UNK
     Dates: start: 20120928, end: 20121012

REACTIONS (1)
  - VIIth nerve paralysis [Recovering/Resolving]
